FAERS Safety Report 6526534-1 (Version None)
Quarter: 2010Q1

REPORT INFORMATION
  Report Type: 
  Country: None (occurrence: None)
  Receive Date: 20100105
  Receipt Date: 20091223
  Transmission Date: 20100710
  Serious: Yes (Other)
  Sender: FDA-Public Use
  Company Number: US-SANOFI-AVENTIS-2009SA011298

PATIENT
  Age: 70 Year
  Sex: Male

DRUGS (2)
  1. PLAVIX [Suspect]
     Route: 048
     Dates: start: 20070101
  2. ASPIRIN [Suspect]
     Route: 048
     Dates: start: 20070101

REACTIONS (3)
  - CAROTID ARTERY OCCLUSION [None]
  - DRUG INEFFECTIVE [None]
  - THROMBOSIS IN DEVICE [None]
